FAERS Safety Report 14571801 (Version 2)
Quarter: 2018Q1

REPORT INFORMATION
  Report Type: Spontaneous
  Country: US (occurrence: US)
  Receive Date: 20180226
  Receipt Date: 20180322
  Transmission Date: 20180509
  Serious: No
  Sender: FDA-Public Use
  Company Number: US-PFIZER INC-2018079074

PATIENT
  Age: 76 Year
  Sex: Female

DRUGS (1)
  1. IBRANCE [Suspect]
     Active Substance: PALBOCICLIB
     Indication: BREAST CANCER METASTATIC
     Dosage: UNK, CYCLIC (21 DAYS ON AND 7 DAYS WITH SMALLER PILL AND ONE WEEK OFF )
     Dates: start: 2017

REACTIONS (4)
  - Influenza [Recovering/Resolving]
  - Asthenia [Not Recovered/Not Resolved]
  - Memory impairment [Unknown]
  - Pruritus generalised [Unknown]
